FAERS Safety Report 10026265 (Version 2)
Quarter: 2014Q3

REPORT INFORMATION
  Report Type: Report from Study
  Country: US (occurrence: US)
  Receive Date: 20140320
  Receipt Date: 20140918
  Transmission Date: 20150326
  Serious: Yes (Hospitalization, Other)
  Sender: FDA-Public Use
  Company Number: US-ALEXION-A200800641

PATIENT

DRUGS (1)
  1. SOLIRIS [Suspect]
     Active Substance: ECULIZUMAB
     Indication: PAROXYSMAL NOCTURNAL HAEMOGLOBINURIA
     Dosage: UNK
     Route: 042

REACTIONS (15)
  - Decreased appetite [Unknown]
  - Peripheral swelling [Unknown]
  - Pain [Unknown]
  - Sinusitis [Unknown]
  - Blood test [Unknown]
  - Contusion [Unknown]
  - Anxiety [Unknown]
  - Pharyngitis [Unknown]
  - Asthenia [Unknown]
  - Liver disorder [Unknown]
  - Malaise [Unknown]
  - Blood urine present [Unknown]
  - Transfusion [Unknown]
  - Crying [Unknown]
  - Depression [Unknown]
